FAERS Safety Report 4972898-X (Version None)
Quarter: 2006Q2

REPORT INFORMATION
  Report Type: 
  Country: None (occurrence: None)
  Receive Date: 20060410
  Receipt Date: 20060327
  Transmission Date: 20061013
  Serious: Yes (Other)
  Sender: FDA-Public Use
  Company Number: 2006043895

PATIENT
  Age: 67 Year
  Sex: Female

DRUGS (3)
  1. DETROL LA [Suspect]
     Indication: INCONTINENCE
     Dosage: 8 MG (4 MG, 2 IN 1 D), ORAL
     Route: 048
     Dates: start: 20050901
  2. MICARDIS HCT [Concomitant]
  3. SYNTHROID [Concomitant]

REACTIONS (5)
  - BLADDER PROLAPSE [None]
  - CONDITION AGGRAVATED [None]
  - KNEE ARTHROPLASTY [None]
  - URINARY INCONTINENCE [None]
  - WEIGHT DECREASED [None]
